FAERS Safety Report 13287082 (Version 2)
Quarter: 2017Q1

REPORT INFORMATION
  Report Type: Spontaneous
  Country: US (occurrence: US)
  Receive Date: 20170302
  Receipt Date: 20170308
  Transmission Date: 20170428
  Serious: Yes (Other)
  Sender: FDA-Public Use
  Company Number: US-PFIZER INC-2017088889

PATIENT
  Sex: Male

DRUGS (1)
  1. CELEBREX [Suspect]
     Active Substance: CELECOXIB
     Dosage: UNK, (TOOK CELEBREX FOR 3 OR 4 YEARS))

REACTIONS (3)
  - Malaise [Unknown]
  - Renal disorder [Unknown]
  - Pain [Unknown]
